FAERS Safety Report 8903451 (Version 2)
Quarter: 2012Q4

REPORT INFORMATION
  Report Type: 
  Country: US (occurrence: US)
  Receive Date: 20121112
  Receipt Date: 20121126
  Transmission Date: 20130627
  Serious: Yes (Other)
  Sender: FDA-Public Use
  Company Number: US-ACTELION-A-NJ2012-73796

PATIENT
  Age: 78 Year
  Sex: Female

DRUGS (3)
  1. TRACLEER [Suspect]
     Indication: PULMONARY ARTERIAL HYPERTENSION
     Dosage: UNK
     Route: 048
     Dates: start: 20120910
  2. COUMADIN [Concomitant]
  3. OXYGEN [Concomitant]

REACTIONS (8)
  - Pulmonary oedema [Unknown]
  - Nasal inflammation [Unknown]
  - Nasal congestion [Unknown]
  - Epistaxis [Unknown]
  - Fluid retention [Unknown]
  - Oedema peripheral [Unknown]
  - Hypotension [Unknown]
  - Fatigue [Unknown]
